FAERS Safety Report 8238235-2 (Version None)
Quarter: 2012Q1

REPORT INFORMATION
  Report Type: 
  Country: None (occurrence: None)
  Receive Date: 20120327
  Receipt Date: 20120322
  Transmission Date: 20120608
  Serious: Yes (Hospitalization)
  Sender: FDA-Public Use
  Company Number: PHHY2012BR025694

PATIENT
  Sex: Female
  Weight: 60 kg

DRUGS (2)
  1. PROPOLIS [Concomitant]
     Indication: PAIN
     Dosage: 10 U, QW3
  2. DIOVAN [Suspect]
     Indication: HYPERTENSION
     Dosage: 160 MG, DAILY
     Route: 048

REACTIONS (3)
  - WRIST FRACTURE [None]
  - FALL [None]
  - RADIUS FRACTURE [None]
